FAERS Safety Report 7441870-2 (Version None)
Quarter: 2011Q2

REPORT INFORMATION
  Report Type: 
  Country: None (occurrence: None)
  Receive Date: 20110428
  Receipt Date: 20110418
  Transmission Date: 20111010
  Serious: Yes (Hospitalization)
  Sender: FDA-Public Use
  Company Number: JP-ELI_LILLY_AND_COMPANY-JP201104000503

PATIENT
  Sex: Male

DRUGS (3)
  1. ASCOMARNA [Concomitant]
     Indication: SCHIZOPHRENIA
     Dosage: 0.25 MG, QD
     Route: 048
     Dates: start: 20061128
  2. ZYPREXA [Suspect]
     Dosage: 10 MG, BID
     Route: 048
     Dates: start: 20080301
  3. ZYPREXA [Suspect]
     Indication: SCHIZOPHRENIA
     Dosage: 10 MG, BID
     Route: 048
     Dates: start: 20070130, end: 20080201

REACTIONS (5)
  - MELAENA [None]
  - CONSTIPATION [None]
  - INAPPROPRIATE SCHEDULE OF DRUG ADMINISTRATION [None]
  - COLITIS ULCERATIVE [None]
  - DIARRHOEA [None]
